FAERS Safety Report 17623022 (Version 1)
Quarter: 2020Q2

REPORT INFORMATION
  Report Type: Spontaneous
  Country: US (occurrence: US)
  Receive Date: 20200403
  Receipt Date: 20200403
  Transmission Date: 20200713
  Serious: Yes (Hospitalization)
  Sender: FDA-Public Use
  Company Number: None

PATIENT
  Age: 80 Year
  Sex: Male

DRUGS (1)
  1. BYSTOLIC [Suspect]
     Active Substance: NEBIVOLOL HYDROCHLORIDE
     Route: 048
     Dates: start: 20190708, end: 20200331

REACTIONS (4)
  - Fall [None]
  - Loss of consciousness [None]
  - Head injury [None]
  - Haemorrhage [None]

NARRATIVE: CASE EVENT DATE: 20200331
